FAERS Safety Report 5052420-2 (Version None)
Quarter: 2006Q3

REPORT INFORMATION
  Report Type: 
  Country: None (occurrence: None)
  Receive Date: 20060717
  Receipt Date: 20060531
  Transmission Date: 20061208
  Serious: No
  Sender: FDA-Public Use
  Company Number: US-BRISTOL-MYERS SQUIBB COMPANY-13397203

PATIENT
  Age: 62 Year
  Sex: Female

DRUGS (1)
  1. CEENU [Suspect]
     Indication: BRAIN NEOPLASM
     Route: 048

REACTIONS (2)
  - CANDIDIASIS [None]
  - CONTUSION [None]
